FAERS Safety Report 11239918 (Version 1)
Quarter: 2015Q3

REPORT INFORMATION
  Report Type: Spontaneous
  Country: US (occurrence: None)
  Receive Date: 20150701
  Receipt Date: 20150701
  Transmission Date: 20151125
  Serious: No
  Sender: FDA-Public Use
  Company Number: None

PATIENT
  Age: 92 Year
  Sex: Male
  Weight: 64.86 kg

DRUGS (9)
  1. AZITHROMYCIN MADE IN INDIA-CODE NO: GU3/DRUGS/G/585DISTRIBUTED BY GREENSTONE LLC PEDPACK, NJ [Suspect]
     Active Substance: AZITHROMYCIN DIHYDRATE
     Indication: INFLUENZA
     Dosage: 250 MG TABLETS?6 PILLS?2 FIRST DAY ?1 NEXT 4 DAYS?BY MOUTH
     Route: 048
     Dates: start: 20150303, end: 20150307
  2. BICALUTAMIDE. [Concomitant]
     Active Substance: BICALUTAMIDE
  3. CASODEX [Concomitant]
     Active Substance: BICALUTAMIDE
  4. SIMVASTATIN. [Concomitant]
     Active Substance: SIMVASTATIN
  5. SENIORS VITAMINS MIXTURE IN WINTER [Concomitant]
  6. ASPIRIN. [Concomitant]
     Active Substance: ASPIRIN
  7. AZITHROMYCIN MADE IN INDIA-CODE NO: GU3/DRUGS/G/585DISTRIBUTED BY GREENSTONE LLC PEDPACK, NJ [Suspect]
     Active Substance: AZITHROMYCIN DIHYDRATE
     Indication: ASTHENIA
     Dosage: 250 MG TABLETS?6 PILLS?2 FIRST DAY ?1 NEXT 4 DAYS?BY MOUTH
     Route: 048
     Dates: start: 20150303, end: 20150307
  8. TIMOLOL MALEATE. [Concomitant]
     Active Substance: TIMOLOL MALEATE
  9. THYROXINE [Concomitant]
     Active Substance: LEVOTHYROXINE

REACTIONS (2)
  - Product shape issue [None]
  - Pollakiuria [None]

NARRATIVE: CASE EVENT DATE: 20150303
